FAERS Safety Report 4359436-X (Version None)
Quarter: 2004Q2

REPORT INFORMATION
  Report Type: 
  Country: None (occurrence: None)
  Receive Date: 20040511
  Receipt Date: 20040412
  Transmission Date: 20050107
  Serious: Yes (Hospitalization, Other)
  Sender: FDA-Public Use
  Company Number: A-CH2004-05382

PATIENT
  Age: 43 Year
  Sex: Female
  Weight: 45 kg

DRUGS (22)
  1. BOSENTAN [Suspect]
     Indication: PULMONARY HYPERTENSION
     Dosage: SEE IMAGE
     Route: 048
     Dates: start: 20020827, end: 20020902
  2. BOSENTAN [Suspect]
     Indication: PULMONARY HYPERTENSION
     Dosage: SEE IMAGE
     Route: 048
     Dates: start: 20020903, end: 20020923
  3. BOSENTAN [Suspect]
     Indication: PULMONARY HYPERTENSION
     Dosage: SEE IMAGE
     Route: 048
     Dates: start: 20020924, end: 20021022
  4. BOSENTAN [Suspect]
     Indication: PULMONARY HYPERTENSION
     Dosage: SEE IMAGE
     Route: 048
     Dates: start: 20021023, end: 20021207
  5. BOSENTAN [Suspect]
     Indication: PULMONARY HYPERTENSION
     Dosage: SEE IMAGE
     Route: 048
     Dates: start: 20021208, end: 20030808
  6. BOSENTAN [Suspect]
     Indication: PULMONARY HYPERTENSION
     Dosage: SEE IMAGE
     Route: 048
     Dates: start: 20030809, end: 20030822
  7. BOSENTAN [Suspect]
     Indication: PULMONARY HYPERTENSION
     Dosage: SEE IMAGE
     Route: 048
     Dates: start: 20030823, end: 20030906
  8. BOSENTAN [Suspect]
     Indication: PULMONARY HYPERTENSION
     Dosage: SEE IMAGE
     Route: 048
     Dates: start: 20030907, end: 20031010
  9. BOSENTAN [Suspect]
     Indication: PULMONARY HYPERTENSION
     Dosage: SEE IMAGE
     Route: 048
     Dates: start: 20031011, end: 20040315
  10. BOSENTAN [Suspect]
     Indication: PULMONARY HYPERTENSION
     Dosage: SEE IMAGE
     Route: 048
     Dates: start: 20040316, end: 20040324
  11. BOSENTAN [Suspect]
     Indication: PULMONARY HYPERTENSION
     Dosage: SEE IMAGE
     Route: 048
     Dates: start: 20040325, end: 20040402
  12. BOSENTAN [Suspect]
     Indication: PULMONARY HYPERTENSION
     Dosage: SEE IMAGE
     Route: 048
     Dates: start: 20040403, end: 20040410
  13. BOSENTAN [Suspect]
     Indication: PULMONARY HYPERTENSION
     Dosage: SEE IMAGE
     Route: 048
     Dates: start: 20040411
  14. HERBESSOR R (DILTIAZEM HYDROCHLORIDE) [Concomitant]
  15. LASIX [Concomitant]
  16. ALDACTONE [Concomitant]
  17. PREDNISOLONE [Concomitant]
  18. SELBEX (TEPRENONE) [Concomitant]
  19. NIZATIDINE [Concomitant]
  20. ISODINE (POVIDONE-IODINE) [Concomitant]
  21. URSO [Concomitant]
  22. HYALEIN (HYALURONATE SODIUM) [Concomitant]

REACTIONS (9)
  - CELLULITIS [None]
  - CONTUSION [None]
  - ERYTHEMA [None]
  - HAEMORRHAGE SUBCUTANEOUS [None]
  - OEDEMA [None]
  - PAIN IN EXTREMITY [None]
  - RIGHT VENTRICULAR FAILURE [None]
  - THROMBOCYTOPENIA [None]
  - WHITE BLOOD CELL COUNT DECREASED [None]
